FAERS Safety Report 12877743 (Version 1)
Quarter: 2016Q4

REPORT INFORMATION
  Report Type: Spontaneous
  Country: US (occurrence: US)
  Receive Date: 20161024
  Receipt Date: 20161024
  Transmission Date: 20170207
  Serious: Yes (Hospitalization)
  Sender: FDA-Public Use
  Company Number: US-PROCTER+GAMBLE-GS16126672

PATIENT
  Age: 40 Year
  Sex: Female

DRUGS (5)
  1. ACETAMINOPHEN W/OXYCODONE [Concomitant]
     Active Substance: ACETAMINOPHEN\OXYCODONE HYDROCHLORIDE
  2. FLUOXETINE [Concomitant]
     Active Substance: FLUOXETINE HYDROCHLORIDE
  3. TRAMADOL. [Concomitant]
     Active Substance: TRAMADOL
  4. DIPHENHYDRAMINE HCL [Suspect]
     Active Substance: DIPHENHYDRAMINE HYDROCHLORIDE
     Dosage: INGESTING AN ^ENTIRE BOTTLE^
     Route: 048
  5. LORAZEPAM. [Concomitant]
     Active Substance: LORAZEPAM

REACTIONS (16)
  - Intentional overdose [Recovered/Resolved]
  - Blood pressure increased [Recovered/Resolved]
  - Seizure [Recovered/Resolved]
  - Electrocardiogram QT prolonged [Recovered/Resolved]
  - Respiratory rate increased [Recovered/Resolved]
  - Flushing [Recovered/Resolved]
  - Electrocardiogram abnormal [Recovered/Resolved]
  - Urinary retention [Recovered/Resolved]
  - Mydriasis [Recovered/Resolved]
  - Ejection fraction decreased [Recovered/Resolved]
  - Stress cardiomyopathy [Recovered/Resolved]
  - Sinus tachycardia [Recovered/Resolved]
  - Troponin increased [Recovered/Resolved]
  - Ventricular hypokinesia [Recovered/Resolved]
  - Electrocardiogram ST segment depression [Recovered/Resolved]
  - Bundle branch block right [Recovered/Resolved]
